FAERS Safety Report 11301793 (Version 1)
Quarter: 2015Q3

REPORT INFORMATION
  Report Type: Spontaneous
  Country: US (occurrence: US)
  Receive Date: 20150722
  Receipt Date: 20150722
  Transmission Date: 20151125
  Serious: No
  Sender: FDA-Public Use
  Company Number: US-ELI_LILLY_AND_COMPANY-US201009004540

PATIENT
  Sex: Male

DRUGS (1)
  1. HUMATROPE [Suspect]
     Active Substance: SOMATROPIN
     Dosage: 0.6 MG, DAILY (1/D)
     Dates: start: 2006

REACTIONS (6)
  - Drug prescribing error [Unknown]
  - Feeling abnormal [Unknown]
  - Infectious mononucleosis [Unknown]
  - Off label use [Unknown]
  - Drug dose omission [Unknown]
  - Fatigue [Unknown]
